FAERS Safety Report 11454995 (Version 1)
Quarter: 2015Q3

REPORT INFORMATION
  Report Type: Spontaneous
  Country: US (occurrence: US)
  Receive Date: 20150831
  Receipt Date: 20150831
  Transmission Date: 20151125
  Serious: Yes (Other)
  Sender: FDA-Public Use
  Company Number: US-ELI_LILLY_AND_COMPANY-US201006004335

PATIENT
  Age: 52 Year
  Sex: Female

DRUGS (1)
  1. CYMBALTA [Suspect]
     Active Substance: DULOXETINE HYDROCHLORIDE
     Indication: DEPRESSION
     Dosage: 20 MG, DAILY (1/D)
     Dates: start: 20100510, end: 20100606

REACTIONS (7)
  - Dizziness [Unknown]
  - Hypertension [Unknown]
  - Vomiting [Unknown]
  - Eye movement disorder [Unknown]
  - Malaise [Unknown]
  - Nausea [Unknown]
  - Headache [Unknown]

NARRATIVE: CASE EVENT DATE: 20100602
